FAERS Safety Report 9213485 (Version 1)
Quarter: 2013Q2

REPORT INFORMATION
  Report Type: Spontaneous
  Country: US (occurrence: US)
  Receive Date: 20130405
  Receipt Date: 20130405
  Transmission Date: 20140414
  Serious: Yes (Hospitalization)
  Sender: FDA-Public Use
  Company Number: US-ASTRAZENECA-2013SE19419

PATIENT
  Age: 76 Year
  Sex: Male
  Weight: 79.4 kg

DRUGS (13)
  1. NEXIUM [Suspect]
     Indication: GASTROOESOPHAGEAL REFLUX DISEASE
     Route: 048
     Dates: start: 20130304, end: 20130308
  2. NEXIUM [Suspect]
     Indication: GASTROOESOPHAGEAL REFLUX DISEASE
     Route: 048
     Dates: start: 20130313, end: 20130313
  3. PLAVIX [Concomitant]
     Indication: THROMBOSIS PROPHYLAXIS
     Dates: start: 20130312
  4. LIPITOR [Concomitant]
     Indication: BLOOD CHOLESTEROL ABNORMAL
     Dates: start: 1994
  5. ZETIA [Concomitant]
     Indication: BLOOD CHOLESTEROL ABNORMAL
     Dates: start: 1996
  6. JENUVIA [Concomitant]
     Indication: BLOOD GLUCOSE ABNORMAL
     Dates: start: 2008
  7. ACTOS [Concomitant]
     Indication: BLOOD GLUCOSE ABNORMAL
     Dates: start: 2008
  8. PREDNISOLONE [Concomitant]
     Indication: POLYMYALGIA RHEUMATICA
     Dates: start: 2003
  9. LEVOTHYROXINE [Concomitant]
     Indication: HYPOTHYROIDISM
     Dates: start: 2003
  10. SATOLOL [Concomitant]
     Indication: ATRIAL FIBRILLATION
     Dates: start: 2011
  11. FLOMAX [Concomitant]
     Indication: URINARY INCONTINENCE
     Dates: start: 2007
  12. ASPIRIN [Concomitant]
     Indication: CARDIAC DISORDER
     Dates: start: 1994
  13. PROZAC [Concomitant]
     Indication: AFFECTIVE DISORDER
     Dosage: UNK DAILY
     Dates: start: 2008

REACTIONS (11)
  - Angina pectoris [Recovered/Resolved]
  - Arterial occlusive disease [Unknown]
  - Dyspepsia [Unknown]
  - Back pain [Recovered/Resolved]
  - Regurgitation [Not Recovered/Not Resolved]
  - Malaise [Unknown]
  - Headache [Unknown]
  - Nausea [Unknown]
  - Diarrhoea [Unknown]
  - Epigastric discomfort [Unknown]
  - Intentional drug misuse [Unknown]
